FAERS Safety Report 8865663 (Version 1)
Quarter: 2012Q4

REPORT INFORMATION
  Report Type: 
  Country: US (occurrence: US)
  Receive Date: 20121024
  Receipt Date: 20121024
  Transmission Date: 20130627
  Serious: No
  Sender: FDA-Public Use
  Company Number: US-AMGEN-USASP2012004259

PATIENT
  Sex: Female
  Weight: 72.56 kg

DRUGS (9)
  1. ENBREL [Suspect]
     Indication: PRODUCT USED FOR UNKNOWN INDICATION
     Dosage: 50 mg, qwk
     Route: 058
  2. PREMARIN [Concomitant]
     Dosage: 0.3 mg, UNK
  3. CORTISOL                           /00014602/ [Concomitant]
     Dosage: UNK
  4. METHOTREXATE [Concomitant]
     Dosage: UNK
  5. FOSAMAX [Concomitant]
     Dosage: 70 mg, UNK
  6. FOLIC ACID [Concomitant]
     Dosage: 1 mg, UNK
  7. VITAMIN E                          /00110501/ [Concomitant]
     Dosage: 100 IU, UNK
  8. CALCIUM [Concomitant]
     Dosage: UNK
  9. ASA [Concomitant]
     Dosage: 81 mg, UNK

REACTIONS (1)
  - Injection site erythema [Recovering/Resolving]
